FAERS Safety Report 8445341-6 (Version None)
Quarter: 2012Q2

REPORT INFORMATION
  Report Type: 
  Country: None (occurrence: None)
  Receive Date: 20120618
  Receipt Date: 20120606
  Transmission Date: 20120825
  Serious: Yes (Life-Threatening, Hospitalization)
  Sender: FDA-Public Use
  Company Number: CH-FRI-1000031409

PATIENT
  Sex: Male

DRUGS (13)
  1. ENOXAPARIN SODIUM [Suspect]
     Indication: PRODUCT USED FOR UNKNOWN INDICATION
     Route: 058
     Dates: start: 20110901, end: 20120228
  2. LANTUS [Concomitant]
     Indication: PRODUCT USED FOR UNKNOWN INDICATION
     Dates: start: 20110901
  3. ACETAMINOPHEN [Suspect]
     Indication: PAIN
     Route: 048
     Dates: start: 20110901, end: 20120101
  4. ROCEPHIN [Suspect]
     Indication: BACTERIAL INFECTION
     Route: 042
     Dates: start: 20110901, end: 20120101
  5. LYRICA [Concomitant]
     Indication: PRODUCT USED FOR UNKNOWN INDICATION
     Route: 048
     Dates: start: 20120101
  6. LORAZEPAM [Concomitant]
     Indication: PRODUCT USED FOR UNKNOWN INDICATION
  7. IMIPENEM AND CILASTATIN SODIUM [Suspect]
     Indication: BACTERIAL INFECTION
     Route: 048
     Dates: start: 20110901, end: 20120228
  8. CITALOPRAM HYDROBROMIDE [Suspect]
     Indication: DEPRESSION
     Route: 048
     Dates: start: 20110901, end: 20120101
  9. TASIGNA [Suspect]
     Indication: MYELOID LEUKAEMIA
     Route: 048
     Dates: start: 20101001
  10. ZINACEF [Suspect]
     Indication: BACTERIAL INFECTION
     Route: 042
     Dates: start: 20110901
  11. NEXIUM [Suspect]
     Indication: PRODUCT USED FOR UNKNOWN INDICATION
     Route: 048
  12. PRIMPERAN TAB [Concomitant]
     Indication: PRODUCT USED FOR UNKNOWN INDICATION
     Route: 048
     Dates: start: 20110901
  13. OXAZEPAM [Concomitant]
     Indication: PRODUCT USED FOR UNKNOWN INDICATION

REACTIONS (2)
  - CONDITION AGGRAVATED [None]
  - CHOLESTATIC LIVER INJURY [None]
